FAERS Safety Report 7563050-2 (Version None)
Quarter: 2011Q2

REPORT INFORMATION
  Report Type: 
  Country: None (occurrence: None)
  Receive Date: 20110615
  Receipt Date: 20110608
  Transmission Date: 20111010
  Serious: Yes (Hospitalization)
  Sender: FDA-Public Use
  Company Number: DKLU1071201

PATIENT
  Age: 8 Year
  Sex: Male

DRUGS (6)
  1. SYNTHROID [Concomitant]
  2. TOPAMAX [Concomitant]
  3. KEPPRA [Concomitant]
  4. XOPENEX [Concomitant]
  5. SABRIL [Suspect]
     Indication: INFANTILE SPASMS
     Dosage: 500 MG MILLIGRAM(S), 2 IN 1 D, ORAL
     Route: 048
  6. PULMICORT [Concomitant]

REACTIONS (5)
  - RESPIRATORY DISTRESS [None]
  - CONVULSION [None]
  - ASTHMA [None]
  - PNEUMONIA [None]
  - BRONCHIAL HYPERREACTIVITY [None]
